FAERS Safety Report 18076805 (Version 2)
Quarter: 2020Q3

REPORT INFORMATION
  Report Type: Spontaneous
  Country: US (occurrence: US)
  Receive Date: 20200728
  Receipt Date: 20200729
  Transmission Date: 20201103
  Serious: Yes (Other)
  Sender: FDA-Public Use
  Company Number: US-TEVA-2020-US-1805655

PATIENT
  Sex: Male

DRUGS (2)
  1. FENTORA [Suspect]
     Active Substance: FENTANYL CITRATE
     Indication: BONE CANCER
     Route: 065
  2. FENTORA [Suspect]
     Active Substance: FENTANYL CITRATE
     Route: 065

REACTIONS (3)
  - Pain [Unknown]
  - Product dose omission issue [Unknown]
  - Neoplasm malignant [Unknown]
